FAERS Safety Report 13586277 (Version 2)
Quarter: 2017Q2

REPORT INFORMATION
  Report Type: Spontaneous
  Country: US (occurrence: US)
  Receive Date: 20170526
  Receipt Date: 20170605
  Transmission Date: 20170830
  Serious: No
  Sender: FDA-Public Use
  Company Number: US-BIOMARINAP-US-2017-114107

PATIENT
  Age: 21 Year
  Sex: Female
  Weight: 27 kg

DRUGS (2)
  1. ALBUTEROL                          /00139501/ [Concomitant]
     Active Substance: ALBUTEROL
  2. VIMIZIM [Suspect]
     Active Substance: ELOSULFASE ALFA
     Indication: MUCOPOLYSACCHARIDOSIS IV
     Dosage: 2 MG/KG, QW
     Route: 042
     Dates: start: 20160503

REACTIONS (5)
  - Viral upper respiratory tract infection [Recovered/Resolved]
  - Sneezing [Recovered/Resolved]
  - Asthma [Recovered/Resolved]
  - Cough [Recovered/Resolved]
  - Oropharyngeal pain [Recovered/Resolved]

NARRATIVE: CASE EVENT DATE: 20170520
